FAERS Safety Report 7355048-4 (Version None)
Quarter: 2011Q1

REPORT INFORMATION
  Report Type: 
  Country: None (occurrence: None)
  Receive Date: 20110307
  Receipt Date: 20110218
  Transmission Date: 20110831
  Serious: Yes (Hospitalization)
  Sender: FDA-Public Use
  Company Number: 026546

PATIENT
  Sex: Female
  Weight: 44 kg

DRUGS (6)
  1. FOLIC ACID [Concomitant]
  2. HYOSCYAMINE [Concomitant]
  3. CIMZIA [Suspect]
     Indication: CROHN'S DISEASE
     Dosage: SUBCUTANEOUS, SUBCUTANEOUS
     Route: 058
     Dates: start: 20110210
  4. CIMZIA [Suspect]
     Indication: CROHN'S DISEASE
     Dosage: SUBCUTANEOUS, SUBCUTANEOUS
     Route: 058
     Dates: start: 20110110, end: 20110125
  5. MESALAMINE [Concomitant]
  6. FLORASTOR [Concomitant]

REACTIONS (22)
  - DEPRESSION [None]
  - CHEST PAIN [None]
  - BLOOD GLUCOSE INCREASED [None]
  - BLOOD CORTISOL DECREASED [None]
  - DISEASE RECURRENCE [None]
  - DEHYDRATION [None]
  - PROCTOCOLITIS [None]
  - WHITE BLOOD CELLS URINE POSITIVE [None]
  - CULTURE THROAT POSITIVE [None]
  - HEART RATE INCREASED [None]
  - ILEITIS [None]
  - BLOOD ALBUMIN DECREASED [None]
  - NO THERAPEUTIC RESPONSE [None]
  - STREPTOCOCCUS TEST POSITIVE [None]
  - WEIGHT DECREASED [None]
  - BLOOD 25-HYDROXYCHOLECALCIFEROL DECREASED [None]
  - MALNUTRITION [None]
  - BLOOD PHOSPHORUS INCREASED [None]
  - ANAEMIA [None]
  - PHARYNGITIS STREPTOCOCCAL [None]
  - DUODENITIS [None]
  - RED BLOOD CELLS URINE POSITIVE [None]
